FAERS Safety Report 9207355 (Version 1)
Quarter: 2013Q2

REPORT INFORMATION
  Report Type: Spontaneous
  Country: US (occurrence: None)
  Receive Date: 20130402
  Receipt Date: 20130402
  Transmission Date: 20140414
  Serious: Yes (Life-Threatening, Hospitalization, Disabling)
  Sender: FDA-Public Use
  Company Number: None

PATIENT
  Age: 53 Year
  Sex: Male
  Weight: 80.9 kg

DRUGS (1)
  1. MULTIHANCE [Suspect]
     Indication: SCAN WITH CONTRAST
     Route: 040
     Dates: start: 20130308, end: 20130308

REACTIONS (5)
  - Anaphylactic shock [None]
  - Angioedema [None]
  - Cardiac arrest [None]
  - Pulseless electrical activity [None]
  - Tracheostomy [None]
